FAERS Safety Report 9119623 (Version 1)
Quarter: 2013Q1

REPORT INFORMATION
  Report Type: Spontaneous
  Country: US (occurrence: US)
  Receive Date: 20130207
  Receipt Date: 20130207
  Transmission Date: 20140127
  Serious: Yes (Death)
  Sender: FDA-Public Use
  Company Number: US-CELGENEUS-163-21880-12103325

PATIENT
  Sex: Male

DRUGS (9)
  1. REVLIMID [Suspect]
     Indication: NON-HODGKIN^S LYMPHOMA
     Dosage: 25 MILLIGRAM
     Route: 048
     Dates: start: 20111117, end: 20120127
  2. DIOVAN [Concomitant]
     Indication: HYPERTENSION
     Dosage: 80-160MG
     Route: 065
  3. VIT E [Concomitant]
     Indication: SUPPLEMENTATION THERAPY
     Route: 065
  4. VIT D [Concomitant]
     Indication: SUPPLEMENTATION THERAPY
     Route: 065
  5. GINKO [Concomitant]
     Indication: SUPPLEMENTATION THERAPY
     Route: 065
  6. GINSENG [Concomitant]
     Indication: SUPPLEMENTATION THERAPY
     Route: 065
  7. SAW PALMETTO [Concomitant]
     Indication: SUPPLEMENTATION THERAPY
     Route: 065
  8. MV [Concomitant]
     Indication: SUPPLEMENTATION THERAPY
     Route: 065
  9. ADVIL [Concomitant]
     Indication: PRODUCT USED FOR UNKNOWN INDICATION
     Route: 065

REACTIONS (1)
  - Non-Hodgkin^s lymphoma [Fatal]
